FAERS Safety Report 9209268 (Version 1)
Quarter: 2013Q1

REPORT INFORMATION
  Report Type: Spontaneous
  Country: US (occurrence: None)
  Receive Date: 20120820
  Receipt Date: 20120820
  Transmission Date: 20140127
  Serious: No
  Sender: FDA-Public Use
  Company Number: 1000037289

PATIENT
  Age: 26 Year
  Sex: Male

DRUGS (2)
  1. VIIBRYD [Suspect]
     Dosage: 1 IN 1 D
     Route: 048
     Dates: start: 201205, end: 2012
  2. VIIBRYD [Suspect]
     Dosage: 1 IN 1 D
     Route: 048
     Dates: start: 2012, end: 201206

REACTIONS (6)
  - Diarrhoea [None]
  - Depression [None]
  - Hypoaesthesia [None]
  - Coordination abnormal [None]
  - Sexual dysfunction [None]
  - Off label use [None]
